FAERS Safety Report 15689595 (Version 2)
Quarter: 2018Q4

REPORT INFORMATION
  Report Type: Report from Study
  Country: BR (occurrence: BR)
  Receive Date: 20181205
  Receipt Date: 20181217
  Transmission Date: 20190205
  Serious: Yes (Hospitalization, Other)
  Sender: FDA-Public Use
  Company Number: BR-SAKK-2018SA271400AA

PATIENT
  Age: 75 Year
  Sex: Female
  Weight: 70 kg

DRUGS (5)
  1. INSULIN GLARGINE [Suspect]
     Active Substance: INSULIN GLARGINE
     Indication: DIABETES MELLITUS
     Dosage: 32 IU, QD
     Route: 058
     Dates: start: 201805
  2. INSULIN RAPID [Concomitant]
     Active Substance: INSULIN NOS
  3. BRILINTA [Concomitant]
     Active Substance: TICAGRELOR
  4. INSULIN GLARGINE [Suspect]
     Active Substance: INSULIN GLARGINE
     Dosage: 40 IU, QD
     Route: 058
     Dates: start: 201805
  5. CIPRO [Concomitant]
     Active Substance: CIPROFLOXACIN HYDROCHLORIDE
     Dosage: UNK UNK, UNK
     Route: 065

REACTIONS (12)
  - Convalescent [Not Recovered/Not Resolved]
  - Malaise [Recovering/Resolving]
  - Impaired healing [Recovering/Resolving]
  - Drug ineffective [Unknown]
  - Cardiac disorder [Not Recovered/Not Resolved]
  - Hypokinesia [Unknown]
  - Leg amputation [Unknown]
  - Cardiac operation [Unknown]
  - Hyperglycaemia [Unknown]
  - Gait disturbance [Not Recovered/Not Resolved]
  - Burning sensation [Unknown]
  - Coma [Recovered/Resolved]

NARRATIVE: CASE EVENT DATE: 201805
